FAERS Safety Report 9834377 (Version 1)
Quarter: 2014Q1

REPORT INFORMATION
  Report Type: Spontaneous
  Country: US (occurrence: US)
  Receive Date: 20140122
  Receipt Date: 20140122
  Transmission Date: 20141002
  Serious: Yes (Other)
  Sender: FDA-Public Use
  Company Number: US-SA-2014SA007803

PATIENT
  Age: 64 Year
  Sex: Female
  Weight: 132.72 kg

DRUGS (6)
  1. FABRAZYME [Suspect]
     Indication: FABRY^S DISEASE
     Route: 042
  2. HEPARIN [Concomitant]
  3. NORMAL SALINE [Concomitant]
  4. SODIUM CHLORIDE [Concomitant]
  5. WATER FOR INJECTION [Concomitant]
  6. EPINEPHRINE [Concomitant]

REACTIONS (3)
  - Concussion [Unknown]
  - Balance disorder [Unknown]
  - Fall [Unknown]
